APPROVED DRUG PRODUCT: FAMCICLOVIR
Active Ingredient: FAMCICLOVIR
Strength: 500MG
Dosage Form/Route: TABLET;ORAL
Application: A202438 | Product #003 | TE Code: AB
Applicant: HETERO LABS LTD UNIT V
Approved: Sep 10, 2014 | RLD: No | RS: No | Type: RX